FAERS Safety Report 8546373 (Version 2)
Quarter: 2012Q4

REPORT INFORMATION
  Report Type: 
  Country: TH (occurrence: TH)
  Receive Date: 20120504
  Receipt Date: 20120925
  Transmission Date: 20130627
  Serious: Yes (Death, Other)
  Sender: FDA-Public Use
  Company Number: PHHY2012TH007532

PATIENT
  Age: 20 Year
  Sex: Female

DRUGS (2)
  1. GLIVEC [Suspect]
     Indication: CHRONIC MYELOID LEUKAEMIA
     Dosage: 600 mg, UNK
     Dates: start: 20111213
  2. GLIVEC [Suspect]
     Dosage: 800 mg, per day
     Dates: start: 20120207, end: 20120426

REACTIONS (5)
  - Death [Fatal]
  - Blast crisis in myelogenous leukaemia [Unknown]
  - Chronic myeloid leukaemia [Unknown]
  - Malignant neoplasm progression [Unknown]
  - Clonal evolution [Unknown]
